FAERS Safety Report 4830124-6 (Version None)
Quarter: 2005Q4

REPORT INFORMATION
  Report Type: 
  Country: None (occurrence: None)
  Receive Date: 20051117
  Receipt Date: 20051110
  Transmission Date: 20060501
  Serious: Yes (Other)
  Sender: FDA-Public Use
  Company Number: 2005SE06497

PATIENT
  Sex: Female

DRUGS (2)
  1. XYLOCAINE [Suspect]
     Dosage: 10 MG/ML 4-5 ML
     Route: 014
     Dates: start: 20051110, end: 20051110
  2. LEDERSPAN [Concomitant]
     Dosage: 20 MG/ML 1 ML

REACTIONS (3)
  - DIZZINESS [None]
  - PARAESTHESIA [None]
  - PARAESTHESIA ORAL [None]
